FAERS Safety Report 5111165-0 (Version None)
Quarter: 2006Q3

REPORT INFORMATION
  Report Type: 
  Country: None (occurrence: None)
  Receive Date: 20060922
  Receipt Date: 20051018
  Transmission Date: 20061208
  Serious: No
  Sender: FDA-Public Use
  Company Number: US-GLAXOSMITHKLINE-A0578557A

PATIENT
  Age: 55 Year
  Sex: Female

DRUGS (2)
  1. ABREVA [Suspect]
     Dates: start: 20051013
  2. ALLERGY SHOT [Concomitant]

REACTIONS (3)
  - COUGH [None]
  - HYPERSENSITIVITY [None]
  - INCREASED UPPER AIRWAY SECRETION [None]
